FAERS Safety Report 15321781 (Version 1)
Quarter: 2018Q3

REPORT INFORMATION
  Report Type: Spontaneous
  Country: US (occurrence: US)
  Receive Date: 20180821
  Receipt Date: 20180821
  Transmission Date: 20181010
  Serious: Yes (Other)
  Sender: FDA-Public Use
  Company Number: None

PATIENT
  Age: 59 Year
  Sex: Male
  Weight: 148.5 kg

DRUGS (1)
  1. ELIQUIS [Suspect]
     Active Substance: APIXABAN
     Indication: ANTICOAGULANT THERAPY
     Dates: start: 20180118, end: 20180818

REACTIONS (9)
  - Balance disorder [None]
  - Back pain [None]
  - Gait disturbance [None]
  - Musculoskeletal pain [None]
  - Therapy cessation [None]
  - Pain in extremity [None]
  - Arthralgia [None]
  - Skin discolouration [None]
  - Overweight [None]

NARRATIVE: CASE EVENT DATE: 20171215
